FAERS Safety Report 10516422 (Version 2)
Quarter: 2017Q1

REPORT INFORMATION
  Report Type: Spontaneous
  Country: US (occurrence: US)
  Receive Date: 20141014
  Receipt Date: 20170309
  Transmission Date: 20170428
  Serious: Yes (Other)
  Sender: FDA-Public Use
  Company Number: US-BAYER-2014-150562

PATIENT
  Age: 25 Year
  Sex: Female
  Weight: 127.89 kg

DRUGS (2)
  1. MIRENA [Suspect]
     Active Substance: LEVONORGESTREL
     Indication: CONTRACEPTION
     Dosage: 20 MCG/24HR, CONT
     Route: 015
     Dates: end: 20091021
  2. ORTHO CYCLEN [Concomitant]
     Active Substance: ETHINYL ESTRADIOL\NORGESTIMATE
     Indication: CONTRACEPTION

REACTIONS (10)
  - Uterine perforation [None]
  - Emotional distress [None]
  - Drug ineffective [None]
  - Pregnancy with contraceptive device [None]
  - Complication of pregnancy [None]
  - Injury [None]
  - Infection [None]
  - Abdominal pain [None]
  - Hysterectomy [None]
  - Cyst [None]

NARRATIVE: CASE EVENT DATE: 20090603
